FAERS Safety Report 6782962-0 (Version None)
Quarter: 2010Q2

REPORT INFORMATION
  Report Type: 
  Country: None (occurrence: None)
  Receive Date: 20100622
  Receipt Date: 20100608
  Transmission Date: 20101027
  Serious: Yes (Hospitalization)
  Sender: FDA-Public Use
  Company Number: US-BAYER-200931857NA

PATIENT
  Age: 28 Year
  Sex: Male
  Weight: 79 kg

DRUGS (4)
  1. CAMPATH [Suspect]
     Indication: MULTIPLE SCLEROSIS
     Dosage: TOTAL DAILY DOSE: 12 MG
     Route: 042
     Dates: start: 20080915, end: 20080919
  2. PERCOCET [Concomitant]
     Dosage: EVERY 4-6 HOURS
     Route: 048
  3. FLOMAX [Concomitant]
  4. IBUPROFEN [Concomitant]

REACTIONS (2)
  - BACK PAIN [None]
  - NEPHROLITHIASIS [None]
